FAERS Safety Report 8473920-9 (Version None)
Quarter: 2012Q2

REPORT INFORMATION
  Report Type: 
  Country: None (occurrence: None)
  Receive Date: 20120621
  Receipt Date: 20120606
  Transmission Date: 20120825
  Serious: Yes (Death)
  Sender: FDA-Public Use
  Company Number: US-2012-10720

PATIENT
  Age: 12 Year

DRUGS (11)
  1. FLUCONAZOLE [Concomitant]
  2. BUSULFAN [Suspect]
     Indication: BONE MARROW CONDITIONING REGIMEN
     Dosage: 16 DOSES, EVERY 6 HOURS, INTRAVENOUS
     Route: 042
  3. ALEMTUZUMAB (ALEMTUZUMAB) [Suspect]
     Indication: BONE MARROW CONDITIONING REGIMEN
     Dosage: 0.5 MG/KG, PARENTERAL
     Route: 051
  4. METHOTREXATE SODIUM [Concomitant]
  5. N-ACETYLSALCYSTEINE (N-ACETYLSALCYSEINE) [Concomitant]
  6. LORAZEPAM [Concomitant]
  7. CLOTRIMAZOLE [Concomitant]
  8. CYCLOSPORINE [Concomitant]
  9. ACYCLOVIR [Concomitant]
  10. FLUDARABINE PHOSPHATE [Suspect]
     Indication: BONE MARROW CONDITIONING REGIMEN
     Dosage: SEE IMAGE
     Route: 051
  11. IMMUNOGLOBULIN G HUMAN (IMMUNOGLOBULIN G HUMAN) [Concomitant]

REACTIONS (2)
  - ACUTE GRAFT VERSUS HOST DISEASE [None]
  - BRONCHOPULMONARY ASPERGILLOSIS [None]
